FAERS Safety Report 8157477-8 (Version None)
Quarter: 2012Q1

REPORT INFORMATION
  Report Type: 
  Country: None (occurrence: None)
  Receive Date: 20120222
  Receipt Date: 20120216
  Transmission Date: 20120608
  Serious: Yes (Hospitalization)
  Sender: FDA-Public Use
  Company Number: CO-GENZYME-CERZ-1002414

PATIENT
  Sex: Male
  Weight: 13 kg

DRUGS (1)
  1. CEREZYME [Suspect]
     Indication: GAUCHER'S DISEASE
     Dosage: 4 VIALS, Q4W
     Route: 042
     Dates: start: 20121027

REACTIONS (3)
  - PLATELET COUNT INCREASED [None]
  - ABDOMINAL PAIN [None]
  - PYREXIA [None]
